FAERS Safety Report 23428638 (Version 1)
Quarter: 2024Q1

REPORT INFORMATION
  Report Type: Spontaneous
  Country: CH (occurrence: CH)
  Receive Date: 20240122
  Receipt Date: 20240122
  Transmission Date: 20240410
  Serious: Yes (Hospitalization)
  Sender: FDA-Public Use
  Company Number: None

PATIENT
  Age: 91 Year
  Sex: Male

DRUGS (6)
  1. ENOXAPARIN SODIUM [Interacting]
     Active Substance: ENOXAPARIN SODIUM
     Indication: Atrial fibrillation
     Dosage: 70 MG, BID
     Dates: start: 20231120, end: 20231123
  2. ENOXAPARIN SODIUM [Interacting]
     Active Substance: ENOXAPARIN SODIUM
     Dosage: 40 MG BID
     Dates: start: 20231124, end: 20231130
  3. CORDARONE [Interacting]
     Active Substance: AMIODARONE HYDROCHLORIDE
     Indication: Atrial fibrillation
     Dosage: 200 MG, QD
     Dates: start: 202308, end: 20231123
  4. APIXABAN [Interacting]
     Active Substance: APIXABAN
     Indication: Atrial fibrillation
     Dosage: 2.5 MG, BID
     Dates: start: 202308, end: 20231116
  5. CALQUENCE [Interacting]
     Active Substance: ACALABRUTINIB
     Indication: Chronic lymphocytic leukaemia stage 4
     Dosage: 100 MG BID
     Dates: start: 202308, end: 20230827
  6. CALQUENCE [Interacting]
     Active Substance: ACALABRUTINIB
     Dosage: 100 MG BID
     Dates: start: 20230920

REACTIONS (6)
  - Haemorrhage [Not Recovered/Not Resolved]
  - Spontaneous haematoma [Not Recovered/Not Resolved]
  - Condition aggravated [Not Recovered/Not Resolved]
  - Drug interaction [Unknown]
  - Drug interaction [Unknown]
  - Medication error [Unknown]

NARRATIVE: CASE EVENT DATE: 20230801
